FAERS Safety Report 19164945 (Version 2)
Quarter: 2022Q4

REPORT INFORMATION
  Report Type: Report from Study
  Country: CA (occurrence: CA)
  Receive Date: 20210421
  Receipt Date: 20221226
  Transmission Date: 20230113
  Serious: Yes (Other)
  Sender: FDA-Public Use
  Company Number: CA-TAKEDA-2021TUS024602

PATIENT
  Age: 40 Year
  Sex: Male

DRUGS (6)
  1. VEDOLIZUMAB [Suspect]
     Active Substance: VEDOLIZUMAB
     Indication: Colitis ulcerative
     Dosage: 300 MILLIGRAM
     Route: 042
     Dates: start: 20181227
  2. VEDOLIZUMAB [Suspect]
     Active Substance: VEDOLIZUMAB
     Dosage: 300 MILLIGRAM
     Route: 042
  3. TRESIBA [Concomitant]
     Active Substance: INSULIN DEGLUDEC
     Dosage: UNK UNK, QD
  4. CIPROFLOXACIN [Concomitant]
     Active Substance: CIPROFLOXACIN
     Dosage: 500 MILLIGRAM, BID
  5. METRONIDAZOLE [Concomitant]
     Active Substance: METRONIDAZOLE
     Dosage: 500 MILLIGRAM, TID
  6. NOVORAPID [Concomitant]
     Active Substance: INSULIN ASPART
     Dosage: UNK UNK, TID

REACTIONS (1)
  - Fistula [Unknown]
